FAERS Safety Report 5797113-9 (Version None)
Quarter: 2008Q2

REPORT INFORMATION
  Report Type: 
  Country: None (occurrence: None)
  Receive Date: 20080618
  Receipt Date: 20071026
  Transmission Date: 20081010
  Serious: Yes (Other)
  Sender: FDA-Public Use
  Company Number: 200717569US

PATIENT
  Age: 69 Year
  Sex: Male

DRUGS (6)
  1. LANTUS [Suspect]
     Indication: TYPE 2 DIABETES MELLITUS
     Dosage: 25 U HS
     Dates: start: 20060101
  2. OPTICLIK [Suspect]
     Indication: TYPE 2 DIABETES MELLITUS
     Dates: start: 20060101
  3. METFORMIN HCL [Concomitant]
  4. GLIPIZIDE [Concomitant]
  5. ALTACE [Concomitant]
  6. SIMAVASTATIN, EZETIMIBE (VYTORIN) [Concomitant]

REACTIONS (2)
  - HYPOGLYCAEMIA [None]
  - TREMOR [None]
